FAERS Safety Report 15493774 (Version 1)
Quarter: 2018Q4

REPORT INFORMATION
  Report Type: Spontaneous
  Country: US (occurrence: US)
  Receive Date: 20181012
  Receipt Date: 20181012
  Transmission Date: 20190205
  Serious: No
  Sender: FDA-Public Use
  Company Number: US-SUNOVION-2018SUN003965

PATIENT

DRUGS (1)
  1. LATUDA [Suspect]
     Active Substance: LURASIDONE HYDROCHLORIDE
     Dosage: 60 MG, UNK
     Route: 064
     Dates: start: 201809, end: 20181001

REACTIONS (2)
  - Foetal exposure during pregnancy [Unknown]
  - Breech presentation [Unknown]

NARRATIVE: CASE EVENT DATE: 201809
